FAERS Safety Report 12012530 (Version 2)
Quarter: 2016Q1

REPORT INFORMATION
  Report Type: Spontaneous
  Country: US (occurrence: US)
  Receive Date: 20160205
  Receipt Date: 20160331
  Transmission Date: 20160526
  Serious: No
  Sender: FDA-Public Use
  Company Number: US-TAKEDA-2016MPI000517

PATIENT
  Sex: Female

DRUGS (2)
  1. NINLARO [Suspect]
     Active Substance: IXAZOMIB
     Indication: PLASMA CELL MYELOMA
     Dosage: 4 MG, 1/WEEK
     Route: 048
     Dates: start: 20160106
  2. NINLARO [Suspect]
     Active Substance: IXAZOMIB
     Dosage: 3 MG, UNK
     Route: 048

REACTIONS (7)
  - Dizziness [Unknown]
  - Condition aggravated [Unknown]
  - Pigmentation disorder [Unknown]
  - Gingival ulceration [Unknown]
  - Vomiting [Unknown]
  - Pain [Unknown]
  - Rib fracture [Unknown]
